FAERS Safety Report 11503129 (Version 2)
Quarter: 2016Q3

REPORT INFORMATION
  Report Type: Spontaneous
  Country: US (occurrence: US)
  Receive Date: 20150914
  Receipt Date: 20160719
  Transmission Date: 20161109
  Serious: Yes (Death, Other)
  Sender: FDA-Public Use
  Company Number: US-ASTELLAS-2015US030865

PATIENT
  Age: 93 Year
  Sex: Male

DRUGS (1)
  1. XTANDI [Suspect]
     Active Substance: ENZALUTAMIDE
     Indication: PROSTATE CANCER
     Route: 048
     Dates: start: 20150529

REACTIONS (7)
  - Death [Fatal]
  - Hypertension [Not Recovered/Not Resolved]
  - Fatigue [Unknown]
  - Oedema [Not Recovered/Not Resolved]
  - Somnolence [Unknown]
  - Dyspnoea [Not Recovered/Not Resolved]
  - Lethargy [Not Recovered/Not Resolved]

NARRATIVE: CASE EVENT DATE: 20160627
